FAERS Safety Report 4601568-2 (Version None)
Quarter: 2005Q1

REPORT INFORMATION
  Report Type: 
  Country: None (occurrence: None)
  Receive Date: 20050131
  Receipt Date: 20041021
  Transmission Date: 20050727
  Serious: No
  Sender: FDA-Public Use
  Company Number: 200418563US

PATIENT
  Age: 57 Year
  Sex: Female

DRUGS (3)
  1. KETEK [Suspect]
     Indication: BRONCHITIS
     Dosage: ONCE PO
     Route: 048
     Dates: start: 20040927, end: 20040927
  2. DEXAMETHASONE ACETATE (DECADRON-LA) [Concomitant]
  3. FLUTICASONE PROPIONATE, SALMETEROL XINAFOATE (ADVAIR) [Concomitant]

REACTIONS (3)
  - FLUSHING [None]
  - PALPITATIONS [None]
  - TREMOR [None]
